FAERS Safety Report 24653149 (Version 4)
Quarter: 2025Q1

REPORT INFORMATION
  Report Type: Report from Study
  Country: US (occurrence: US)
  Receive Date: 20241122
  Receipt Date: 20250110
  Transmission Date: 20250408
  Serious: Yes (Hospitalization, Other)
  Sender: ABBVIE
  Company Number: US-ABBVIE-6011165

PATIENT
  Age: 65 Year
  Sex: Male
  Weight: 88 kg

DRUGS (21)
  1. HUMIRA [Suspect]
     Active Substance: ADALIMUMAB
     Indication: Rheumatoid arthritis
     Dosage: CITRATE FREE
     Route: 058
     Dates: start: 2017
  2. HUMIRA [Suspect]
     Active Substance: ADALIMUMAB
     Route: 058
     Dates: start: 2015, end: 2017
  3. FOLIC ACID [Concomitant]
     Active Substance: FOLIC ACID
     Indication: Vitamin supplementation
  4. CANDESARTAN [Concomitant]
     Active Substance: CANDESARTAN
     Indication: Hypertension
  5. ATORVASTATIN [Concomitant]
     Active Substance: ATORVASTATIN
     Indication: Blood cholesterol abnormal
  6. QUETIAPINE [Concomitant]
     Active Substance: QUETIAPINE
     Indication: Insomnia
  7. METFORMIN [Concomitant]
     Active Substance: METFORMIN HYDROCHLORIDE
     Indication: Glucose tolerance impaired
  8. TAMSULOSIN [Concomitant]
     Active Substance: TAMSULOSIN
     Indication: Prostatic disorder
  9. HYDROXYZINE [Concomitant]
     Active Substance: HYDROXYZINE HYDROCHLORIDE
     Indication: Insomnia
  10. METHOTREXATE [Suspect]
     Active Substance: METHOTREXATE
     Indication: Rheumatoid arthritis
     Route: 065
  11. VITAMIN D [Concomitant]
     Active Substance: VITAMIN D NOS
     Indication: Arthritis
  12. CLONAZEPAM [Concomitant]
     Active Substance: CLONAZEPAM
     Indication: Insomnia
  13. COVID-19 vaccine [Concomitant]
     Indication: COVID-19 immunisation
     Route: 030
  14. COVID-19 vaccine [Concomitant]
     Indication: COVID-19 immunisation
     Route: 030
  15. COVID-19 vaccine [Concomitant]
     Indication: COVID-19 immunisation
     Route: 030
  16. COVID-19 vaccine [Concomitant]
     Indication: COVID-19 immunisation
     Route: 030
  17. COVID-19 vaccine [Concomitant]
     Indication: COVID-19 immunisation
     Route: 030
  18. COVID-19 vaccine [Concomitant]
     Indication: COVID-19 immunisation
     Route: 030
  19. COVID-19 vaccine [Concomitant]
     Indication: COVID-19 immunisation
     Route: 030
  20. COVID-19 vaccine [Concomitant]
     Indication: COVID-19 immunisation
     Route: 030
  21. INFLUENZA VIRUS VACCINE [Concomitant]
     Active Substance: INFLUENZA VIRUS VACCINE
     Indication: Product used for unknown indication

REACTIONS (8)
  - Stomach mass [Unknown]
  - Tuberculosis [Recovered/Resolved]
  - Limb operation [Unknown]
  - Chronic gastritis [Not Recovered/Not Resolved]
  - Surgery [Unknown]
  - Limb operation [Recovered/Resolved]
  - Renal impairment [Unknown]
  - Osteoarthritis [Unknown]

NARRATIVE: CASE EVENT DATE: 20170101
